FAERS Safety Report 12083923 (Version 1)
Quarter: 2016Q1

REPORT INFORMATION
  Report Type: Spontaneous
  Country: US (occurrence: None)
  Receive Date: 20160216
  Receipt Date: 20160216
  Transmission Date: 20160526
  Serious: Yes (Other)
  Sender: FDA-Public Use
  Company Number: None

PATIENT
  Age: 54 Year
  Sex: Male
  Weight: 79.38 kg

DRUGS (5)
  1. AZITHROMYCIN 250 MG TEVA PHARMACEUTICALS [Suspect]
     Active Substance: AZITHROMYCIN MONOHYDRATE
     Indication: EAR INFECTION
     Dosage: 6 PILLS ONCE DAILY TAKEN BY MOUTH
     Route: 048
     Dates: start: 20160208, end: 20160210
  2. MULBERRY LEAF EXTRACT TABLETS [Concomitant]
  3. ROBITUSSIN DM [Concomitant]
     Active Substance: DEXTROMETHORPHAN HYDROBROMIDE\GUAIFENESIN
  4. ATORVASTATIN [Concomitant]
     Active Substance: ATORVASTATIN
  5. IBUPROFEN. [Concomitant]
     Active Substance: IBUPROFEN

REACTIONS (17)
  - Vomiting [None]
  - Abdominal pain [None]
  - Abdominal pain upper [None]
  - Nausea [None]
  - Fatigue [None]
  - Hyperhidrosis [None]
  - Dysphagia [None]
  - Chills [None]
  - Dyspnoea [None]
  - Vertigo [None]
  - Vision blurred [None]
  - Speech disorder [None]
  - Restlessness [None]
  - Dizziness [None]
  - Nervousness [None]
  - Agitation [None]
  - Muscular weakness [None]

NARRATIVE: CASE EVENT DATE: 20160208
